FAERS Safety Report 25933105 (Version 1)
Quarter: 2025Q4

REPORT INFORMATION
  Report Type: Spontaneous
  Country: JP (occurrence: JP)
  Receive Date: 20251017
  Receipt Date: 20251017
  Transmission Date: 20260118
  Serious: Yes (Death)
  Sender: SPECGX
  Company Number: JP-SPECGX-T202501708

PATIENT
  Age: 6 Decade
  Sex: Male

DRUGS (1)
  1. METHADONE [Suspect]
     Active Substance: METHADONE HYDROCHLORIDE
     Indication: Cancer pain
     Dosage: 75 MILLIGRAM, QD
     Route: 048

REACTIONS (2)
  - Lymphangiosis carcinomatosa [Fatal]
  - Respiratory failure [Fatal]
